FAERS Safety Report 25658039 (Version 1)
Quarter: 2025Q3

REPORT INFORMATION
  Report Type: Spontaneous
  Country: US (occurrence: US)
  Receive Date: 20250808
  Receipt Date: 20250808
  Transmission Date: 20251020
  Serious: No
  Sender: AMNEAL
  Company Number: US-AMNEAL PHARMACEUTICALS-2025-AMRX-02219

PATIENT
  Age: 67 Year
  Sex: Female

DRUGS (2)
  1. TRAMADOL HYDROCHLORIDE [Suspect]
     Active Substance: TRAMADOL HYDROCHLORIDE
     Indication: Pain
     Dosage: 4 TABLETS, 4X/DAY
     Route: 048
     Dates: start: 20250512, end: 202505
  2. TIZANIDINE [Concomitant]
     Active Substance: TIZANIDINE
     Indication: Product used for unknown indication
     Dosage: 1 DOSAGE FORM, 4X/DAY
     Route: 065
     Dates: start: 2020

REACTIONS (9)
  - Back pain [Recovered/Resolved]
  - Hot flush [Recovered/Resolved]
  - Loss of personal independence in daily activities [Recovered/Resolved]
  - Eating disorder [Recovered/Resolved]
  - Somnolence [Recovered/Resolved]
  - Abdominal pain upper [Recovered/Resolved]
  - Hyperhidrosis [Recovered/Resolved]
  - Cold sweat [Recovered/Resolved]
  - Serum serotonin increased [Unknown]

NARRATIVE: CASE EVENT DATE: 20250501
